FAERS Safety Report 11805544 (Version 1)
Quarter: 2015Q4

REPORT INFORMATION
  Report Type: Spontaneous
  Country: ES (occurrence: None)
  Receive Date: 20151204
  Receipt Date: 20151204
  Transmission Date: 20160305
  Serious: Yes (Other)
  Sender: FDA-Public Use
  Company Number: None

PATIENT
  Age: 47 Year
  Sex: Male
  Weight: 74 kg

DRUGS (1)
  1. LANSOPRAZOL 30 MG [Suspect]
     Active Substance: LANSOPRAZOLE
     Indication: GASTROINTESTINAL DISORDER
     Dosage: DATE OF USE GIVEN  10/11/1902 - 10/11/2015
     Route: 048
     Dates: end: 20151011

REACTIONS (4)
  - Middle insomnia [None]
  - Discomfort [None]
  - Oral pain [None]
  - Abdominal pain upper [None]

NARRATIVE: CASE EVENT DATE: 20151011
